FAERS Safety Report 6171573-6 (Version None)
Quarter: 2009Q2

REPORT INFORMATION
  Report Type: 
  Country: None (occurrence: None)
  Receive Date: 20090429
  Receipt Date: 20090424
  Transmission Date: 20091009
  Serious: Yes (Life-Threatening)
  Sender: FDA-Public Use
  Company Number: JP-BAYER-200911118BYL

PATIENT
  Age: 26 Year
  Sex: Female
  Weight: 50 kg

DRUGS (4)
  1. MAGNEVIST [Suspect]
     Indication: NUCLEAR MAGNETIC RESONANCE IMAGING
     Dosage: VIA ANTECUBITAL VEIN
     Route: 042
     Dates: start: 20090330, end: 20090330
  2. ZOMETA [Concomitant]
     Indication: METASTASES TO BONE
     Route: 042
     Dates: start: 20090330
  3. FARMORUBICIN [Concomitant]
     Indication: METASTASES TO BONE
     Route: 042
  4. ENDOXAN [Concomitant]
     Indication: METASTASES TO BONE
     Route: 042
     Dates: start: 20090330

REACTIONS (6)
  - ABDOMINAL PAIN [None]
  - BLOOD PRESSURE IMMEASURABLE [None]
  - BRADYCARDIA [None]
  - DEPRESSED LEVEL OF CONSCIOUSNESS [None]
  - PALLOR [None]
  - SHOCK [None]
